FAERS Safety Report 7582667-2 (Version None)
Quarter: 2011Q2

REPORT INFORMATION
  Report Type: 
  Country: None (occurrence: None)
  Receive Date: 20110630
  Receipt Date: 20110627
  Transmission Date: 20111010
  Serious: Yes (Other)
  Sender: FDA-Public Use
  Company Number: US-PFIZER INC-2011070827

PATIENT
  Sex: Female

DRUGS (5)
  1. SYNTHROID [Concomitant]
     Indication: HYPOTHYROIDISM
     Dosage: UNK
     Dates: start: 20000101
  2. CHANTIX [Suspect]
     Indication: SMOKING CESSATION THERAPY
     Dosage: UNK
     Dates: start: 20070501, end: 20070501
  3. CHANTIX [Suspect]
     Dosage: UNK
     Dates: start: 20071001, end: 20080101
  4. MUCINEX [Concomitant]
     Indication: SINUSITIS
     Dosage: UNK
     Dates: start: 19900101, end: 20100101
  5. CIPROFLOXACIN [Concomitant]
     Indication: SINUSITIS
     Dosage: UNK
     Dates: start: 19900101, end: 20100101

REACTIONS (6)
  - ANGER [None]
  - SUICIDAL IDEATION [None]
  - AGGRESSION [None]
  - ANXIETY [None]
  - INSOMNIA [None]
  - DEPRESSION [None]
